FAERS Safety Report 10954003 (Version 1)
Quarter: 2015Q1

REPORT INFORMATION
  Report Type: Spontaneous
  Country: US (occurrence: None)
  Receive Date: 20150226
  Receipt Date: 20150226
  Transmission Date: 20150721
  Serious: Yes (Hospitalization)
  Sender: FDA-Public Use
  Company Number: TAP2005Q00815

PATIENT
  Age: 67 Year
  Sex: Male

DRUGS (4)
  1. BIAXIN [Suspect]
     Active Substance: CLARITHROMYCIN
     Indication: HELICOBACTER INFECTION
     Route: 048
     Dates: start: 200505, end: 200505
  2. PREVACID [Suspect]
     Active Substance: LANSOPRAZOLE
     Indication: HELICOBACTER INFECTION
     Dosage: 0.5 CARD
     Route: 048
     Dates: start: 200505, end: 200505
  3. PREVACID [Suspect]
     Active Substance: LANSOPRAZOLE
     Indication: PROPHYLAXIS
     Dosage: 0.5 CARD
     Route: 048
     Dates: start: 200505, end: 200505
  4. BIAXIN [Suspect]
     Active Substance: CLARITHROMYCIN
     Indication: PROPHYLAXIS
     Route: 048
     Dates: start: 200505, end: 200505

REACTIONS (8)
  - Decreased appetite [None]
  - Jaundice [None]
  - Liver function test abnormal [None]
  - Nausea [None]
  - Abdominal pain [None]
  - Vomiting [None]
  - Blood bilirubin increased [None]
  - Hepatitis [None]

NARRATIVE: CASE EVENT DATE: 200505
